FAERS Safety Report 11159851 (Version 1)
Quarter: 2015Q2

REPORT INFORMATION
  Report Type: Spontaneous
  Country: BR (occurrence: BR)
  Receive Date: 20150603
  Receipt Date: 20150603
  Transmission Date: 20150821
  Serious: Yes (Other)
  Sender: FDA-Public Use
  Company Number: BR-PFIZER INC-2015182746

PATIENT
  Age: 42 Year
  Sex: Female
  Weight: 74 kg

DRUGS (5)
  1. TRAMAL [Concomitant]
     Active Substance: TRAMADOL
     Indication: PAIN
     Dosage: 2 TABLETS OF STRENGTH 50 MG (100 MG), DAILY
     Dates: start: 201412
  2. IBUPROFEN. [Concomitant]
     Active Substance: IBUPROFEN
     Indication: PAIN
     Dosage: 2 TABLETS, DAILY
     Dates: start: 201501
  3. LYRICA [Suspect]
     Active Substance: PREGABALIN
     Indication: HYPOAESTHESIA
     Dosage: 2 TABLETS, DAILY
     Route: 048
  4. DIAZEPAM. [Concomitant]
     Active Substance: DIAZEPAM
     Indication: MUSCLE RELAXANT THERAPY
     Dosage: 1 TABLET, DAILY
     Dates: start: 20150507
  5. METAMIZOLE [Concomitant]
     Active Substance: METAMIZOLE
     Indication: PAIN
     Dosage: 2 TABLETS, DAILY
     Dates: start: 20150507

REACTIONS (2)
  - Nerve compression [Unknown]
  - Intervertebral disc protrusion [Unknown]
